FAERS Safety Report 5094890-X (Version None)
Quarter: 2006Q3

REPORT INFORMATION
  Report Type: 
  Country: None (occurrence: None)
  Receive Date: 20060728
  Receipt Date: 20060530
  Transmission Date: 20061208
  Serious: No
  Sender: FDA-Public Use
  Company Number: 253714

PATIENT
  Age: 71 Year
  Sex: Male
  Weight: 103.4 kg

DRUGS (3)
  1. LEVEMIR [Suspect]
     Indication: INSULIN-REQUIRING TYPE II DIABETES MELLITUS
     Dosage: SEE IMAGE
     Route: 058
     Dates: start: 20060501, end: 20060501
  2. LEVEMIR [Suspect]
     Indication: INSULIN-REQUIRING TYPE II DIABETES MELLITUS
     Dosage: SEE IMAGE
     Route: 058
     Dates: start: 20060501
  3. HUMALOG [Concomitant]

REACTIONS (2)
  - BLOOD GLUCOSE INCREASED [None]
  - INJECTION SITE PAIN [None]
